FAERS Safety Report 26114010 (Version 1)
Quarter: 2025Q4

REPORT INFORMATION
  Report Type: Spontaneous
  Country: AU (occurrence: AU)
  Receive Date: 20251202
  Receipt Date: 20251202
  Transmission Date: 20260118
  Serious: Yes (Life-Threatening)
  Sender: MERCK SHARP & DOHME LLC
  Company Number: AU-009507513-2356289

PATIENT
  Age: 66 Year
  Sex: Female

DRUGS (2)
  1. ROCURONIUM BROMIDE [Suspect]
     Active Substance: ROCURONIUM BROMIDE
     Indication: Induction of anaesthesia
     Dosage: TIME INTERVAL: TOTAL: DOSE: 100 MILLIGRAM; INTERVAL: 1 TOTAL;
     Route: 042
     Dates: start: 20250526
  2. CEFAZOLIN SODIUM [Suspect]
     Active Substance: CEFAZOLIN SODIUM
     Indication: Antibiotic therapy
     Dosage: TIME INTERVAL: TOTAL: DOSE: 2 GRAM; INTERVAL: 1 TOTAL
     Route: 042
     Dates: start: 20250526

REACTIONS (1)
  - Anaphylactic reaction [Not Recovered/Not Resolved]

NARRATIVE: CASE EVENT DATE: 20250526
